FAERS Safety Report 23367462 (Version 1)
Quarter: 2024Q1

REPORT INFORMATION
  Report Type: Spontaneous
  Country: IT (occurrence: IT)
  Receive Date: 20240104
  Receipt Date: 20240104
  Transmission Date: 20240410
  Serious: Yes (Other)
  Sender: FDA-Public Use
  Company Number: None

PATIENT
  Age: 3 Year
  Sex: Female
  Weight: 15 kg

DRUGS (5)
  1. CLARITHROMYCIN [Suspect]
     Active Substance: CLARITHROMYCIN
     Indication: Pneumonia
     Dosage: 4.5 MILLILITER, BID (SUSPENSION 250 MG/5 ML: 4.5 ML 2 TIMES A DAY)
     Route: 048
     Dates: start: 20231115, end: 20231201
  2. BECLOMETHASONE DIPROPIONATE [Concomitant]
     Active Substance: BECLOMETHASONE DIPROPIONATE
     Dosage: 800 MCG/2 ML: 1/2 AMPOULE PER DAY
     Route: 065
     Dates: start: 20231115, end: 20231123
  3. BREVA [Concomitant]
     Active Substance: ALBUTEROL\IPRATROPIUM
     Dosage: 5 GTT DROPS, QD
     Route: 055
     Dates: start: 20231115, end: 20231123
  4. BETAMETHASONE SODIUM PHOSPHATE [Concomitant]
     Active Substance: BETAMETHASONE SODIUM PHOSPHATE
     Dosage: 1.5 MILLIGRAM, QD
     Route: 048
     Dates: start: 20231115, end: 20231127
  5. BETAMETHASONE SODIUM PHOSPHATE [Concomitant]
     Active Substance: BETAMETHASONE SODIUM PHOSPHATE
     Dosage: 1 MILLIGRAM, QD
     Route: 048

REACTIONS (1)
  - Oral candidiasis [Recovered/Resolved]

NARRATIVE: CASE EVENT DATE: 20231121
